FAERS Safety Report 7558517-7 (Version None)
Quarter: 2011Q2

REPORT INFORMATION
  Report Type: 
  Country: None (occurrence: None)
  Receive Date: 20110620
  Receipt Date: 20110609
  Transmission Date: 20111010
  Serious: No
  Sender: FDA-Public Use
  Company Number: US-ROXANE LABORATORIES, INC.-2011-RO-00610RO

PATIENT
  Sex: Male

DRUGS (2)
  1. BLOOD THINNER [Concomitant]
     Indication: ANTICOAGULANT THERAPY
  2. FUROSEMIDE [Suspect]
     Indication: OEDEMA
     Route: 048
     Dates: start: 20110502

REACTIONS (3)
  - PRODUCT TASTE ABNORMAL [None]
  - PRODUCT ODOUR ABNORMAL [None]
  - ABDOMINAL DISCOMFORT [None]
